FAERS Safety Report 26121340 (Version 1)
Quarter: 2025Q4

REPORT INFORMATION
  Report Type: Spontaneous
  Country: US (occurrence: None)
  Receive Date: 20251203
  Receipt Date: 20251203
  Transmission Date: 20260117
  Serious: Yes (Other)
  Sender: FDA-CTU
  Company Number: None

PATIENT

DRUGS (1)
  1. IOPAMIDOL [Suspect]
     Active Substance: IOPAMIDOL

REACTIONS (5)
  - Cough [None]
  - Sneezing [None]
  - Feeling hot [None]
  - Pruritus [None]
  - Cardio-respiratory distress [None]
